FAERS Safety Report 24190457 (Version 2)
Quarter: 2024Q3

REPORT INFORMATION
  Report Type: Spontaneous
  Country: IE (occurrence: IE)
  Receive Date: 20240808
  Receipt Date: 20240823
  Transmission Date: 20241017
  Serious: Yes (Hospitalization)
  Sender: TEVA
  Company Number: IE-TEVA-VS-3229778

PATIENT
  Sex: Female

DRUGS (1)
  1. IMATINIB [Suspect]
     Active Substance: IMATINIB
     Indication: Systemic mastocytosis
     Route: 065

REACTIONS (2)
  - Renal tubular necrosis [Unknown]
  - Acute kidney injury [Unknown]
